FAERS Safety Report 20529625 (Version 6)
Quarter: 2022Q3

REPORT INFORMATION
  Report Type: Report from Study
  Country: US (occurrence: US)
  Receive Date: 20220301
  Receipt Date: 20220705
  Transmission Date: 20221027
  Serious: No
  Sender: FDA-Public Use
  Company Number: US-NOVARTISTESTPH-NVSC2022US046421

PATIENT
  Sex: Female

DRUGS (2)
  1. ENTRESTO [Suspect]
     Active Substance: SACUBITRIL\VALSARTAN
     Indication: Cardiac failure
     Dosage: 0.5 DOSAGE FORM, BID (24/26MG)
     Route: 048
     Dates: start: 20220218
  2. ENTRESTO [Suspect]
     Active Substance: SACUBITRIL\VALSARTAN
     Dosage: 1 DOSAGE FORM, QD (24/26MG)
     Route: 048

REACTIONS (14)
  - Lethargy [Unknown]
  - Blood urea increased [Not Recovered/Not Resolved]
  - Blood creatinine increased [Not Recovered/Not Resolved]
  - Heart rate increased [Recovering/Resolving]
  - Weight fluctuation [Unknown]
  - Hypoaesthesia [Unknown]
  - Dyspnoea [Unknown]
  - Blood sodium decreased [Unknown]
  - Fatigue [Unknown]
  - Headache [Not Recovered/Not Resolved]
  - Dizziness [Unknown]
  - Prescribed underdose [Unknown]
  - Wrong technique in product usage process [Not Recovered/Not Resolved]
  - Inappropriate schedule of product administration [Not Recovered/Not Resolved]
